FAERS Safety Report 24456797 (Version 3)
Quarter: 2025Q4

REPORT INFORMATION
  Report Type: Spontaneous
  Country: US (occurrence: US)
  Receive Date: 20241018
  Receipt Date: 20251024
  Transmission Date: 20260118
  Serious: Yes (Other)
  Sender: ABBVIE
  Company Number: US-ABBVIE-5963568

PATIENT
  Age: 25 Year
  Sex: Female
  Weight: 70 kg

DRUGS (7)
  1. SYNTHROID [Suspect]
     Active Substance: LEVOTHYROXINE SODIUM
     Indication: Hypothyroidism
     Route: 048
     Dates: start: 20240402
  2. FOLIC ACID [Concomitant]
     Active Substance: FOLIC ACID
     Indication: Product used for unknown indication
  3. LETROZOLE [Concomitant]
     Active Substance: LETROZOLE
     Indication: Infertility
  4. LETROZOLE [Concomitant]
     Active Substance: LETROZOLE
     Indication: Infertility
  5. PROGESTERONE [Concomitant]
     Active Substance: PROGESTERONE
     Indication: Prophylaxis of abortion
     Route: 048
     Dates: start: 2023, end: 20240322
  6. ASPIRIN [Concomitant]
     Active Substance: ASPIRIN
     Indication: Prophylaxis
     Route: 048
     Dates: start: 20240402
  7. LEVOTHYROXINE [Concomitant]
     Active Substance: LEVOTHYROXINE
     Indication: Hypothyroidism
     Route: 048
     Dates: start: 20240729

REACTIONS (4)
  - HELLP syndrome [Recovered/Resolved]
  - Maternal exposure during pregnancy [Unknown]
  - Pre-eclampsia [Unknown]
  - Live birth [Unknown]

NARRATIVE: CASE EVENT DATE: 20240101
